FAERS Safety Report 8277368-1 (Version None)
Quarter: 2012Q2

REPORT INFORMATION
  Report Type: 
  Country: None (occurrence: None)
  Receive Date: 20120412
  Receipt Date: 20120403
  Transmission Date: 20120825
  Serious: Yes (Other)
  Sender: FDA-Public Use
  Company Number: JP-VERTEX PHARMACEUTICALS INC.-AE-2012-003362

PATIENT
  Age: 58 Year
  Sex: Female

DRUGS (16)
  1. FOIPAN [Concomitant]
     Route: 048
  2. METHYCOBAL [Concomitant]
  3. ROZAGOOD [Concomitant]
  4. MEDICON [Concomitant]
  5. DIOVAN [Concomitant]
  6. FERROUS CITRATE [Concomitant]
  7. LEVOTHYROXINE SODIUM [Concomitant]
  8. TELAVIC (TELAPREVIR) [Suspect]
     Indication: HEPATITIS C
     Route: 048
     Dates: start: 20120301, end: 20120305
  9. PEG-INTRON [Concomitant]
     Indication: HEPATITIS C
     Route: 058
     Dates: start: 20120301, end: 20120305
  10. THEOLANG [Concomitant]
  11. BIO-THREE [Concomitant]
  12. REBETOL [Concomitant]
     Indication: HEPATITIS C
     Route: 048
     Dates: start: 20120301, end: 20120305
  13. MAGMITT [Concomitant]
  14. FAMOTIDINE [Concomitant]
  15. ZOLPIDEM [Concomitant]
  16. OLOPATADINE HCL [Concomitant]

REACTIONS (6)
  - BLOOD CREATININE INCREASED [None]
  - C-REACTIVE PROTEIN INCREASED [None]
  - BLOOD UREA INCREASED [None]
  - PYREXIA [None]
  - MALAISE [None]
  - VOMITING [None]
